FAERS Safety Report 7774101-4 (Version None)
Quarter: 2011Q3

REPORT INFORMATION
  Report Type: 
  Country: None (occurrence: None)
  Receive Date: 20110923
  Receipt Date: 20110920
  Transmission Date: 20111222
  Serious: No
  Sender: FDA-Public Use
  Company Number: US-PFIZER INC-2011224442

PATIENT
  Age: 14 Year
  Sex: Male

DRUGS (1)
  1. GENOTROPIN [Suspect]
     Dosage: 1.6 MG, DAILY
     Dates: start: 20110606

REACTIONS (3)
  - VOMITING [None]
  - NAUSEA [None]
  - PAIN [None]
